FAERS Safety Report 25168507 (Version 1)
Quarter: 2025Q2

REPORT INFORMATION
  Report Type: Spontaneous
  Country: US (occurrence: US)
  Receive Date: 20250407
  Receipt Date: 20250407
  Transmission Date: 20250717
  Serious: No
  Sender: FERRING
  Company Number: US-FERRINGPH-2025FE00380

PATIENT
  Age: 71 Year
  Sex: Male
  Weight: 91.156 kg

DRUGS (1)
  1. ADSTILADRIN [Suspect]
     Active Substance: NADOFARAGENE FIRADENOVEC-VNCG
     Indication: Bladder cancer
     Dosage: 75 ML, EVERY 3RD MONTH
     Route: 065
     Dates: start: 20250124

REACTIONS (1)
  - Instillation site discharge [Recovered/Resolved]

NARRATIVE: CASE EVENT DATE: 20250124
